FAERS Safety Report 12154606 (Version 1)
Quarter: 2016Q1

REPORT INFORMATION
  Report Type: Report from Study
  Country: GR (occurrence: GR)
  Receive Date: 20160307
  Receipt Date: 20160307
  Transmission Date: 20160526
  Serious: Yes (Hospitalization)
  Sender: FDA-Public Use
  Company Number: PHHY2016GR026098

PATIENT
  Age: 50 Year
  Sex: Female

DRUGS (1)
  1. SANDOSTATIN LAR DEPOT [Suspect]
     Active Substance: OCTREOTIDE ACETATE
     Indication: ENDOCRINE NEOPLASM
     Route: 065
     Dates: start: 20140630

REACTIONS (3)
  - Blood potassium decreased [Unknown]
  - Haematocrit decreased [Unknown]
  - Blood sodium decreased [Unknown]
